FAERS Safety Report 7708981-5 (Version None)
Quarter: 2011Q3

REPORT INFORMATION
  Report Type: 
  Country: None (occurrence: None)
  Receive Date: 20110825
  Receipt Date: 20110811
  Transmission Date: 20111222
  Serious: Yes (Other)
  Sender: FDA-Public Use
  Company Number: CH-UCBSA-039093

PATIENT
  Sex: Male

DRUGS (4)
  1. LEXOTANIL [Concomitant]
     Route: 048
  2. KEPPRA [Suspect]
     Indication: EPILEPSY
     Route: 048
     Dates: start: 20110808
  3. ACE-INHIBITOR [Concomitant]
     Route: 048
  4. URBAY [Concomitant]
     Route: 048

REACTIONS (1)
  - BLOOD CREATINE PHOSPHOKINASE INCREASED [None]
